FAERS Safety Report 6110433-3 (Version None)
Quarter: 2009Q1

REPORT INFORMATION
  Report Type: 
  Country: None (occurrence: None)
  Receive Date: 20090310
  Receipt Date: 20090305
  Transmission Date: 20090719
  Serious: Yes (Other)
  Sender: FDA-Public Use
  Company Number: US-ABBOTT-09P-163-0560925-00

PATIENT
  Age: 18 Month
  Sex: Male

DRUGS (1)
  1. ULTANE [Suspect]
     Indication: ANAESTHESIA
     Route: 055

REACTIONS (1)
  - SUPRAVENTRICULAR TACHYCARDIA [None]
